FAERS Safety Report 9466043 (Version 1)
Quarter: 2013Q3

REPORT INFORMATION
  Report Type: Spontaneous
  Country: US (occurrence: None)
  Receive Date: 20130816
  Receipt Date: 20130816
  Transmission Date: 20140515
  Serious: Yes (Disabling)
  Sender: FDA-Public Use
  Company Number: None

PATIENT
  Age: 38 Year
  Sex: Female
  Weight: 63.5 kg

DRUGS (1)
  1. FLUOXETINE 20MG ? [Suspect]
     Indication: DEPRESSION
     Dosage: 1   ONCE DAILY  TAKEN BY MOUTH
     Route: 048
     Dates: start: 20130727, end: 20130814

REACTIONS (8)
  - Product colour issue [None]
  - Abnormal behaviour [None]
  - Depression [None]
  - Anxiety [None]
  - Panic attack [None]
  - Fear [None]
  - Negative thoughts [None]
  - Product substitution issue [None]
